FAERS Safety Report 8893788 (Version 1)
Quarter: 2012Q4

REPORT INFORMATION
  Report Type: 
  Country: US (occurrence: US)
  Receive Date: 20121107
  Receipt Date: 20121107
  Transmission Date: 20130627
  Serious: Yes (Hospitalization)
  Sender: FDA-Public Use
  Company Number: US-AMGEN-USASP2012045596

PATIENT
  Age: 61 Year
  Sex: Female

DRUGS (1)
  1. ENBREL [Suspect]
     Indication: RHEUMATOID ARTHRITIS
     Dosage: 50 mg, qwk
     Dates: start: 20090101, end: 201206

REACTIONS (4)
  - Arthritis infective [Recovered/Resolved]
  - Urticaria [Recovered/Resolved]
  - Cellulitis [Recovered/Resolved]
  - Bacterial infection [Recovered/Resolved]
